FAERS Safety Report 11029332 (Version 1)
Quarter: 2015Q2

REPORT INFORMATION
  Report Type: Spontaneous
  Country: CN (occurrence: CN)
  Receive Date: 20150415
  Receipt Date: 20150415
  Transmission Date: 20150821
  Serious: Yes (Other)
  Sender: FDA-Public Use
  Company Number: CN-JNJFOC-20150405113

PATIENT
  Age: 70 Year
  Sex: Female
  Weight: 50 kg

DRUGS (1)
  1. BAND-AID MEDICATED AB BANDAGE 100 [Suspect]
     Active Substance: BENZALKONIUM CHLORIDE
     Indication: ARTHRALGIA
     Route: 061
     Dates: start: 20141207, end: 20141208

REACTIONS (1)
  - Urticaria [Recovered/Resolved]

NARRATIVE: CASE EVENT DATE: 20141208
